FAERS Safety Report 19889051 (Version 1)
Quarter: 2021Q3

REPORT INFORMATION
  Report Type: Spontaneous
  Country: US (occurrence: US)
  Receive Date: 20210927
  Receipt Date: 20210927
  Transmission Date: 20211014
  Serious: Yes (Hospitalization)
  Sender: FDA-Public Use
  Company Number: None

PATIENT
  Sex: Female

DRUGS (18)
  1. TRIAMCINOLONE ACETONIDE. [Concomitant]
     Active Substance: TRIAMCINOLONE ACETONIDE
  2. VANCOMYCIN [Concomitant]
     Active Substance: VANCOMYCIN
  3. SYNTHROID [Concomitant]
     Active Substance: LEVOTHYROXINE SODIUM
  4. BENADRYL [Concomitant]
     Active Substance: DIPHENHYDRAMINE HYDROCHLORIDE
  5. CAPECITABINE 500 MG TABLET [Suspect]
     Active Substance: CAPECITABINE
     Indication: BREAST CANCER FEMALE
     Route: 048
  6. CLOBETASOL PROPIONATE. [Concomitant]
     Active Substance: CLOBETASOL PROPIONATE
  7. METOPROLOL SUCCINATE ER [Concomitant]
     Active Substance: METOPROLOL SUCCINATE
  8. RED RASPBERRY GOLD [Concomitant]
  9. LOVENOX [Concomitant]
     Active Substance: ENOXAPARIN SODIUM
  10. POTASSIUM CHLORIDE ER [Concomitant]
     Active Substance: POTASSIUM CHLORIDE
  11. CALCIUM [Concomitant]
     Active Substance: CALCIUM
  12. PROCHLORPERAZINE. [Concomitant]
     Active Substance: PROCHLORPERAZINE
  13. IV ALBUMIN [Concomitant]
  14. FUROSEMIDE. [Concomitant]
     Active Substance: FUROSEMIDE
  15. DILTIAZEM. [Concomitant]
     Active Substance: DILTIAZEM
  16. VITAMIN D3 [Concomitant]
     Active Substance: CHOLECALCIFEROL
  17. IV PUSH LASIX [Concomitant]
  18. NERLYNX [Concomitant]
     Active Substance: NERATINIB

REACTIONS (10)
  - Illness [None]
  - Oedema peripheral [None]
  - Swelling [None]
  - Oedema [None]
  - Diarrhoea [None]
  - Abdominal pain upper [None]
  - Constipation [None]
  - Blood albumin decreased [None]
  - Sepsis [None]
  - Protein total decreased [None]
